FAERS Safety Report 8797639 (Version 1)
Quarter: 2012Q4

REPORT INFORMATION
  Report Type: 
  Country: US (occurrence: US)
  Receive Date: 20120920
  Receipt Date: 20120920
  Transmission Date: 20130627
  Serious: No
  Sender: FDA-Public Use
  Company Number: US-009507513-1208USA008227

PATIENT
  Age: 58 Year
  Sex: Female

DRUGS (3)
  1. PEG-INTRON [Suspect]
     Indication: HEPATITIS C
     Dosage: 120 Microgram, qw, therapy route: injection
     Dates: start: 20120807
  2. RIBAPAK [Concomitant]
  3. TELAPREVIR [Concomitant]

REACTIONS (3)
  - Vomiting [Unknown]
  - Nausea [Unknown]
  - Nausea [Unknown]
